FAERS Safety Report 21961404 (Version 5)
Quarter: 2023Q2

REPORT INFORMATION
  Report Type: Spontaneous
  Country: US (occurrence: US)
  Receive Date: 20230207
  Receipt Date: 20230408
  Transmission Date: 20230722
  Serious: Yes (Other)
  Sender: FDA-Public Use
  Company Number: US-UNITED THERAPEUTICS-UNT-2023-002862

PATIENT
  Age: 54 Year
  Sex: Male

DRUGS (12)
  1. REMODULIN [Suspect]
     Active Substance: TREPROSTINIL
     Indication: Pulmonary arterial hypertension
     Dosage: 0.01771 ?G/KG, CONTINUING
     Route: 058
     Dates: start: 202301
  2. REMODULIN [Suspect]
     Active Substance: TREPROSTINIL
     Dosage: 0.018 ?G/KG, CONTINUING
     Route: 058
  3. REMODULIN [Suspect]
     Active Substance: TREPROSTINIL
     Dosage: UNK (AT A INFUSION RATE OF 36 UL/HR), CONTINUING
     Route: 058
     Dates: start: 20230206
  4. REMODULIN [Suspect]
     Active Substance: TREPROSTINIL
     Dosage: 0.02125 ?G/KG, CONTINUING
     Route: 058
  5. REMODULIN [Suspect]
     Active Substance: TREPROSTINIL
     Dosage: UNK, CONTINUING
     Route: 058
     Dates: start: 202301, end: 20230212
  6. REMODULIN [Suspect]
     Active Substance: TREPROSTINIL
     Indication: Pulmonary arterial hypertension
     Dosage: APPROXIMATELY 0.03187 ?G/KG (USING 1.8 ML WITH PUMP RATE 27 MCL/ HOUR), CONTINUING
     Route: 058
     Dates: start: 20230212
  7. REMODULIN [Suspect]
     Active Substance: TREPROSTINIL
     Dosage: UNK (PUMP RATE 17UL/HR), CONTINUING
     Route: 058
     Dates: start: 20230212
  8. REMODULIN [Suspect]
     Active Substance: TREPROSTINIL
     Dosage: 0.02243 ?G/KG (PUMP RATE 19UL/HR USING 1.8ML EVERY 70 HOURS), CONTINUING
     Route: 058
     Dates: start: 20230212
  9. REMODULIN [Suspect]
     Active Substance: TREPROSTINIL
     Dosage: 0.02243 ?G/KG, CONTINUING
     Route: 058
     Dates: start: 202302
  10. LOSARTAN [Suspect]
     Active Substance: LOSARTAN
     Indication: Product used for unknown indication
     Dosage: UNK
     Route: 065
  11. ALDACTONE [Suspect]
     Active Substance: SPIRONOLACTONE
     Indication: Product used for unknown indication
     Dosage: UNK
     Route: 065
  12. CARVEDILOL [Suspect]
     Active Substance: CARVEDILOL
     Indication: Product used for unknown indication
     Dosage: UNK
     Route: 065

REACTIONS (13)
  - Bradycardia [Recovered/Resolved]
  - Syncope [Recovered/Resolved]
  - Dizziness postural [Recovered/Resolved]
  - Flushing [Recovered/Resolved]
  - Hypotension [Recovered/Resolved]
  - Headache [Recovered/Resolved]
  - Infusion site pain [Recovered/Resolved]
  - Fatigue [Recovered/Resolved]
  - Malaise [Recovered/Resolved]
  - Incorrect drug administration rate [Recovered/Resolved]
  - Wrong dose [Recovered/Resolved]
  - Product label confusion [Unknown]
  - Nausea [Recovered/Resolved]

NARRATIVE: CASE EVENT DATE: 20230101
